FAERS Safety Report 5007348-0 (Version None)
Quarter: 2006Q2

REPORT INFORMATION
  Report Type: 
  Country: None (occurrence: None)
  Receive Date: 20060517
  Receipt Date: 20060508
  Transmission Date: 20061013
  Serious: Yes (Congenital Anomaly)
  Sender: FDA-Public Use
  Company Number: FEI2006-0685

PATIENT

DRUGS (3)
  1. PARAGARD T380A (INTRAUTERINE CONTRACEPTIVES) [Suspect]
  2. PRENATAL VITAMINS [Concomitant]
  3. UNSPECIFIED DIET PILLS [Concomitant]

REACTIONS (4)
  - DRUG EXPOSURE DURING PREGNANCY [None]
  - FOETAL DISORDER [None]
  - PLACENTAL TRANSFUSION SYNDROME [None]
  - PREGNANCY WITH CONTRACEPTIVE DEVICE [None]
